FAERS Safety Report 6954764-3 (Version None)
Quarter: 2010Q3

REPORT INFORMATION
  Report Type: 
  Country: None (occurrence: None)
  Receive Date: 20100830
  Receipt Date: 20100824
  Transmission Date: 20110219
  Serious: Yes (Hospitalization)
  Sender: FDA-Public Use
  Company Number: US-BIOGENIDEC-2010BI028798

PATIENT
  Age: 49 Year
  Sex: Female
  Weight: 79 kg

DRUGS (5)
  1. AVONEX [Suspect]
     Indication: MULTIPLE SCLEROSIS
     Route: 030
     Dates: start: 20060615
  2. DEPAKOTE [Concomitant]
     Route: 048
  3. LEXAPRO [Concomitant]
     Route: 048
  4. XANAX [Concomitant]
     Route: 048
  5. AMBIEN [Concomitant]
     Route: 048

REACTIONS (17)
  - BEDRIDDEN [None]
  - BLOOD POTASSIUM DECREASED [None]
  - CONTUSION [None]
  - DYSPNOEA [None]
  - FALL [None]
  - GINGIVAL INJURY [None]
  - HAEMATURIA [None]
  - HEAD INJURY [None]
  - HEPATIC ENZYME ABNORMAL [None]
  - LOSS OF CONSCIOUSNESS [None]
  - MULTIPLE SCLEROSIS RELAPSE [None]
  - OEDEMA PERIPHERAL [None]
  - PAIN [None]
  - POST-TRAUMATIC PAIN [None]
  - SCAB [None]
  - SKIN LACERATION [None]
  - STRESS [None]
